FAERS Safety Report 10240537 (Version 3)
Quarter: 2015Q1

REPORT INFORMATION
  Report Type: Spontaneous
  Country: JP (occurrence: JP)
  Receive Date: 20140617
  Receipt Date: 20150206
  Transmission Date: 20150720
  Serious: Yes (Hospitalization, Other)
  Sender: FDA-Public Use
  Company Number: PHHY2014JP074069

PATIENT
  Sex: Male

DRUGS (2)
  1. ZOMETA [Suspect]
     Active Substance: ZOLEDRONIC ACID
     Indication: PLASMA CELL MYELOMA
     Dosage: 4 MG, PER ADMINISTRATION, DAILY
     Route: 041
     Dates: start: 200808, end: 201303
  2. ZOMETA [Suspect]
     Active Substance: ZOLEDRONIC ACID
     Dosage: 4 MG, PER ADMINISTRATION
     Route: 041
     Dates: start: 200808, end: 201304

REACTIONS (8)
  - Erythema [Unknown]
  - Secretion discharge [Unknown]
  - Osteonecrosis of jaw [Unknown]
  - Fistula [Unknown]
  - Gingivitis [Unknown]
  - Pain [Unknown]
  - Tenderness [Unknown]
  - Swelling [Unknown]

NARRATIVE: CASE EVENT DATE: 201404
